FAERS Safety Report 13269708 (Version 1)
Quarter: 2017Q1

REPORT INFORMATION
  Report Type: Spontaneous
  Country: SI (occurrence: SI)
  Receive Date: 20170224
  Receipt Date: 20170224
  Transmission Date: 20170428
  Serious: Yes (Other)
  Sender: FDA-Public Use
  Company Number: SI-BAYER-2017-024313

PATIENT
  Age: 59 Year
  Sex: Female

DRUGS (4)
  1. AMPRIL [Concomitant]
  2. BETAFERON [Suspect]
     Active Substance: INTERFERON BETA-1B
     Indication: RELAPSING-REMITTING MULTIPLE SCLEROSIS
     Dosage: UNK
     Dates: start: 2003
  3. BETAFERON [Suspect]
     Active Substance: INTERFERON BETA-1B
     Indication: SECONDARY PROGRESSIVE MULTIPLE SCLEROSIS
  4. CONCOR [Concomitant]
     Active Substance: BISOPROLOL FUMARATE

REACTIONS (7)
  - Paraparesis [None]
  - Injection site reaction [None]
  - Fatigue [None]
  - Gait disturbance [None]
  - Multiple sclerosis [None]
  - Micturition urgency [None]
  - Pollakiuria [None]
